FAERS Safety Report 7163270-5 (Version None)
Quarter: 2010Q4

REPORT INFORMATION
  Report Type: 
  Country: None (occurrence: None)
  Receive Date: 20101215
  Receipt Date: 20100825
  Transmission Date: 20110411
  Serious: No
  Sender: FDA-Public Use
  Company Number: US-ABBOTT-10P-163-0666291-00

PATIENT
  Sex: Female
  Weight: 131.66 kg

DRUGS (3)
  1. HYTRIN [Suspect]
     Indication: BLADDER DISORDER
     Dates: start: 19900101, end: 20080101
  2. LEVOTHYROXINE [Concomitant]
     Indication: PRODUCT USED FOR UNKNOWN INDICATION
  3. ALLOPURINOL [Concomitant]
     Indication: PRODUCT USED FOR UNKNOWN INDICATION

REACTIONS (3)
  - DYSURIA [None]
  - FEELING ABNORMAL [None]
  - POLLAKIURIA [None]
